FAERS Safety Report 24125365 (Version 1)
Quarter: 2024Q3

REPORT INFORMATION
  Report Type: Report from Study
  Country: CA (occurrence: CA)
  Receive Date: 20240723
  Receipt Date: 20240723
  Transmission Date: 20241017
  Serious: Yes (Other)
  Sender: ABBVIE
  Company Number: CA-ABBVIE-5845660

PATIENT
  Sex: Female

DRUGS (1)
  1. HUMIRA [Suspect]
     Active Substance: ADALIMUMAB
     Indication: Colitis ulcerative
     Route: 058
     Dates: start: 20050405

REACTIONS (12)
  - Ileostomy [Unknown]
  - Dyspepsia [Unknown]
  - Dyspepsia [Unknown]
  - Erythema [Unknown]
  - Skin erosion [Unknown]
  - Stoma site hypergranulation [Unknown]
  - Duodenitis [Unknown]
  - Stoma site reaction [Unknown]
  - Colitis ulcerative [Unknown]
  - Pyoderma gangrenosum [Unknown]
  - Arthralgia [Unknown]
  - Stoma site haemorrhage [Unknown]
